FAERS Safety Report 7954294-6 (Version None)
Quarter: 2011Q4

REPORT INFORMATION
  Report Type: 
  Country: None (occurrence: None)
  Receive Date: 20111202
  Receipt Date: 20111122
  Transmission Date: 20120403
  Serious: Yes (Hospitalization)
  Sender: FDA-Public Use
  Company Number: IL-TEVA-303567ISR

PATIENT
  Sex: Female
  Weight: 53.5 kg

DRUGS (3)
  1. MERCAPTOPURINE [Suspect]
     Indication: CROHN'S DISEASE
     Dosage: MERCAPTOPURINE 40MG OR 80MG OR PURINETHOL
     Route: 048
     Dates: start: 20110926, end: 20111002
  2. PENTASA [Concomitant]
     Indication: CROHN'S DISEASE
     Dosage: 4 MILLIGRAM;
     Route: 048
     Dates: start: 20110613
  3. PURINETHOL [Suspect]
     Indication: CROHN'S DISEASE
     Dosage: MERCAPTOPURINE 40MG OR 80MG OR PURINETHOL
     Route: 048
     Dates: start: 20110926, end: 20111002

REACTIONS (1)
  - PANCREATITIS ACUTE [None]
